FAERS Safety Report 6389359-6 (Version None)
Quarter: 2009Q4

REPORT INFORMATION
  Report Type: 
  Country: None (occurrence: None)
  Receive Date: 20091006
  Receipt Date: 20070718
  Transmission Date: 20100525
  Serious: Yes (Hospitalization, Other)
  Sender: FDA-Public Use
  Company Number: US-ASTRAZENECA-2006UW24018

PATIENT
  Age: 51 Year
  Sex: Male
  Weight: 86.2 kg

DRUGS (24)
  1. SEROQUEL [Suspect]
     Indication: SCHIZOPHRENIA
     Route: 048
     Dates: start: 20020101
  2. SEROQUEL [Suspect]
     Indication: AGITATION
     Route: 048
     Dates: start: 20020101
  3. SEROQUEL [Suspect]
     Dosage: 70 MG-1600 MG IN A FLUCTUATING DOSE
     Route: 048
     Dates: start: 20040101, end: 20060101
  4. SEROQUEL [Suspect]
     Dosage: 70 MG-1600 MG IN A FLUCTUATING DOSE
     Route: 048
     Dates: start: 20040101, end: 20060101
  5. ABILIFY [Concomitant]
  6. GEODON [Concomitant]
     Dates: start: 20030101
  7. HALDOL [Concomitant]
  8. NAVANE [Concomitant]
  9. RISPERDAL [Concomitant]
     Route: 048
     Dates: start: 20060301
  10. SOLIAN [Concomitant]
  11. STELAZINE [Concomitant]
  12. TRILAFON [Concomitant]
  13. ZYPREXA [Concomitant]
  14. PROZAC [Concomitant]
     Dates: start: 20050101
  15. GLUCOPHAGE [Concomitant]
     Indication: DIABETES MELLITUS
     Dosage: 1000 MG-2000MG
     Dates: start: 20050401
  16. VALIUM [Concomitant]
     Indication: ANXIETY
     Dates: start: 20030101
  17. RESTORIL [Concomitant]
     Indication: SLEEP DISORDER
     Route: 048
     Dates: start: 20051001
  18. ATIVAN [Concomitant]
     Indication: ANXIETY
     Dosage: 1 MG-2 MG
     Route: 048
     Dates: start: 20051001
  19. ATIVAN [Concomitant]
     Indication: AGITATION
     Dosage: 1 MG-2 MG
     Route: 048
     Dates: start: 20051001
  20. DEPAKOTE [Concomitant]
     Dates: start: 20060301
  21. LISINOPRIL [Concomitant]
     Dates: start: 20060301
  22. COGENTIN [Concomitant]
     Dosage: 1 MG EVERY 12 HOURS AS NEEDED
     Dates: start: 20060301
  23. AMARYL [Concomitant]
     Dates: start: 20051201
  24. KLONOPIN [Concomitant]
     Dates: start: 20050817

REACTIONS (6)
  - DIABETES MELLITUS [None]
  - DIABETIC FOOT INFECTION [None]
  - DIABETIC NEUROPATHY [None]
  - DIABETIC ULCER [None]
  - TARDIVE DYSKINESIA [None]
  - TYPE 2 DIABETES MELLITUS [None]
